FAERS Safety Report 9529447 (Version 2)
Quarter: 2013Q3

REPORT INFORMATION
  Report Type: Report from Study
  Country: US (occurrence: US)
  Receive Date: 20130917
  Receipt Date: 20130917
  Transmission Date: 20140515
  Serious: Yes (Other)
  Sender: FDA-Public Use
  Company Number: PHEH2013US017949

PATIENT
  Age: 59 Year
  Sex: Female

DRUGS (10)
  1. TASIGNA [Suspect]
     Indication: CHRONIC MYELOID LEUKAEMIA
     Dosage: 400 MG, BID
     Route: 048
     Dates: start: 201307
  2. MAGNESIUM [Concomitant]
  3. VITAMIN D3 [Concomitant]
     Dosage: UNK
  4. XANAX [Concomitant]
  5. ASPIRIN [Concomitant]
  6. SIMETHICONE [Concomitant]
  7. STOOL SOFTENER [Concomitant]
  8. PROBIOTICS [Concomitant]
  9. CALCIUM CITRATE [Concomitant]
  10. SENNA LAX [Concomitant]

REACTIONS (2)
  - Haemorrhage [Unknown]
  - Platelet count decreased [Unknown]
